FAERS Safety Report 12685976 (Version 3)
Quarter: 2017Q1

REPORT INFORMATION
  Report Type: Report from Study
  Country: US (occurrence: US)
  Receive Date: 20160825
  Receipt Date: 20170316
  Transmission Date: 20170428
  Serious: Yes (Hospitalization)
  Sender: FDA-Public Use
  Company Number: US-SA-2016SA043520

PATIENT
  Age: 40 Year
  Sex: Female

DRUGS (2)
  1. LEMTRADA [Suspect]
     Active Substance: ALEMTUZUMAB
     Indication: MULTIPLE SCLEROSIS
     Route: 041
     Dates: start: 20160208, end: 20160212
  2. LEMTRADA [Suspect]
     Active Substance: ALEMTUZUMAB
     Indication: MULTIPLE SCLEROSIS
     Route: 041

REACTIONS (7)
  - Slow speech [Unknown]
  - Infusion related reaction [Unknown]
  - Urine analysis abnormal [Not Recovered/Not Resolved]
  - Loss of consciousness [Unknown]
  - Hypotension [Recovering/Resolving]
  - Nuclear magnetic resonance imaging abnormal [Not Recovered/Not Resolved]
  - Grip strength decreased [Unknown]

NARRATIVE: CASE EVENT DATE: 201602
